FAERS Safety Report 13396245 (Version 1)
Quarter: 2017Q2

REPORT INFORMATION
  Report Type: Spontaneous
  Country: AU (occurrence: AU)
  Receive Date: 20170403
  Receipt Date: 20170403
  Transmission Date: 20170830
  Serious: Yes (Life-Threatening)
  Sender: FDA-Public Use
  Company Number: AU-GUERBET LLC-1064913

PATIENT
  Sex: Male

DRUGS (2)
  1. DOTAREM [Suspect]
     Active Substance: GADOTERATE MEGLUMINE
     Indication: PRODUCT USED FOR UNKNOWN INDICATION
  2. DICLOFENAC SODIUM. [Concomitant]
     Active Substance: DICLOFENAC SODIUM

REACTIONS (6)
  - Blood pressure immeasurable [Unknown]
  - Cold sweat [Unknown]
  - Feeling hot [Unknown]
  - Oxygen saturation decreased [Unknown]
  - Sinus tachycardia [Unknown]
  - Pruritus [Unknown]
